FAERS Safety Report 25277969 (Version 1)
Quarter: 2025Q2

REPORT INFORMATION
  Report Type: Spontaneous
  Country: US (occurrence: US)
  Receive Date: 20250507
  Receipt Date: 20250507
  Transmission Date: 20250716
  Serious: Yes (Death, Hospitalization)
  Sender: AMGEN
  Company Number: US-AMGEN-USASP2025086857

PATIENT

DRUGS (2)
  1. RITUXIMAB [Suspect]
     Active Substance: RITUXIMAB
     Indication: Haematological malignancy
     Route: 065
  2. PREDNISONE [Suspect]
     Active Substance: PREDNISONE
     Indication: Haematological malignancy
     Route: 065

REACTIONS (9)
  - Death [Fatal]
  - Atrioventricular block first degree [Unknown]
  - Atrial fibrillation [Unknown]
  - Lactic acidosis [Unknown]
  - Spinal stenosis [Unknown]
  - Acute kidney injury [Unknown]
  - Tumour lysis syndrome [Unknown]
  - Dyspnoea [Unknown]
  - Hospice care [Unknown]
